FAERS Safety Report 6782498-7 (Version None)
Quarter: 2010Q2

REPORT INFORMATION
  Report Type: 
  Country: None (occurrence: None)
  Receive Date: 20100616
  Receipt Date: 20090818
  Transmission Date: 20101027
  Serious: Yes (Disabling)
  Sender: FDA-Public Use
  Company Number: APP200900522

PATIENT
  Age: 49 Year
  Sex: Female

DRUGS (5)
  1. SENSORCAINE [Suspect]
     Indication: MUSCULOSKELETAL PAIN
     Dosage: 300ML, WITH NORMAL SALINE AND EPINEPHRINE INTRA-ARTICULAR
     Route: 014
     Dates: start: 20060428
  2. ZIMMER PAIN DROP [Suspect]
     Indication: MUSCULOSKELETAL PAIN
     Dates: start: 20060428
  3. ESTRADIOL [Concomitant]
  4. SYNTHROID [Concomitant]
  5. MARCAINE [Concomitant]

REACTIONS (6)
  - CHONDROLYSIS [None]
  - JOINT RANGE OF MOTION DECREASED [None]
  - MUSCULOSKELETAL DISCOMFORT [None]
  - MUSCULOSKELETAL DISORDER [None]
  - MUSCULOSKELETAL PAIN [None]
  - TREATMENT NONCOMPLIANCE [None]
